FAERS Safety Report 6613387-6 (Version None)
Quarter: 2010Q1

REPORT INFORMATION
  Report Type: 
  Country: None (occurrence: None)
  Receive Date: 20100304
  Receipt Date: 20100219
  Transmission Date: 20100710
  Serious: Yes (Hospitalization)
  Sender: FDA-Public Use
  Company Number: PHHY2009DE52346

PATIENT
  Age: 61 Year
  Sex: Female

DRUGS (4)
  1. RASILEZ [Suspect]
     Indication: HYPERTENSION
     Dosage: 150 MG, 1 DF QD
     Route: 048
     Dates: start: 20090501, end: 20091101
  2. JANUMET [Suspect]
     Indication: DIABETES MELLITUS
     Dosage: 1 DF/ DAILY
     Route: 048
     Dates: start: 20090501, end: 20091101
  3. BISOPROLOL [Concomitant]
     Indication: HYPERTENSION
     Dosage: UNK
  4. DECORTIN [Concomitant]
     Dosage: UNK

REACTIONS (2)
  - MUCOSAL HAEMORRHAGE [None]
  - THROMBOCYTOPENIA [None]
